FAERS Safety Report 7526778-6 (Version None)
Quarter: 2011Q2

REPORT INFORMATION
  Report Type: 
  Country: None (occurrence: None)
  Receive Date: 20110606
  Receipt Date: 20110523
  Transmission Date: 20111010
  Serious: Yes (Hospitalization)
  Sender: FDA-Public Use
  Company Number: CH-VALEANT-2011VX001481

PATIENT
  Age: 81 Year
  Sex: Male

DRUGS (5)
  1. STALEVO 100 [Concomitant]
     Indication: PARKINSON'S DISEASE
     Route: 065
  2. MESTINON [Suspect]
     Indication: ORTHOSTATIC HYPOTENSION
     Route: 065
     Dates: start: 20110503, end: 20110505
  3. MARCOUMAR [Concomitant]
     Indication: CARDIAC PACEMAKER INSERTION
     Route: 065
  4. REMERON [Concomitant]
     Indication: DEPRESSION
     Route: 065
  5. REMERON [Concomitant]
     Indication: SLEEP DISORDER
     Route: 065

REACTIONS (3)
  - AMNESIA [None]
  - PELVIC FRACTURE [None]
  - FALL [None]
